FAERS Safety Report 8523047-2 (Version None)
Quarter: 2012Q3

REPORT INFORMATION
  Report Type: 
  Country: None (occurrence: None)
  Receive Date: 20120720
  Receipt Date: 20120716
  Transmission Date: 20120928
  Serious: Yes (Life-Threatening, Hospitalization)
  Sender: FDA-Public Use
  Company Number: EC-ROCHE-1088651

PATIENT
  Age: 53 Year
  Sex: Female

DRUGS (7)
  1. METHOTREXATE [Suspect]
     Indication: RHEUMATOID ARTHRITIS
  2. RITUXIMAB [Suspect]
     Dosage: 2 CYCLES
     Route: 042
     Dates: start: 20111017, end: 20111031
  3. VITAMIN B COMPLEX CAP [Concomitant]
     Indication: PRODUCT USED FOR UNKNOWN INDICATION
  4. NAPROXEN [Concomitant]
     Indication: RHEUMATOID ARTHRITIS
  5. PREDNISONE [Concomitant]
     Indication: RHEUMATOID ARTHRITIS
  6. RITUXIMAB [Suspect]
     Indication: RHEUMATOID ARTHRITIS
     Dosage: 2 CYCLES
     Route: 042
     Dates: start: 20090101
  7. GEMFIBROZIL [Concomitant]
     Indication: HYPERTRIGLYCERIDAEMIA

REACTIONS (4)
  - DIARRHOEA [None]
  - DEHYDRATION [None]
  - VOMITING [None]
  - ABDOMINAL PAIN [None]
